FAERS Safety Report 19326115 (Version 1)
Quarter: 2021Q2

REPORT INFORMATION
  Report Type: Report from Study
  Country: IL (occurrence: IL)
  Receive Date: 20210528
  Receipt Date: 20210528
  Transmission Date: 20210717
  Serious: Yes (Other)
  Sender: FDA-Public Use
  Company Number: IL-SUN PHARMACEUTICAL INDUSTRIES LTD-2021R1-298572

PATIENT
  Age: 28 Year
  Sex: Female

DRUGS (6)
  1. CICLOSPORIN [Suspect]
     Active Substance: CYCLOSPORINE
     Indication: EOSINOPHILIC CELLULITIS
     Dosage: UNK , DAILY
     Route: 065
  2. DAPSONE. [Concomitant]
     Active Substance: DAPSONE
     Indication: EOSINOPHILIC CELLULITIS
     Dosage: UNK , DAILY
     Route: 065
  3. COLCHICINE. [Concomitant]
     Active Substance: COLCHICINE
     Indication: EOSINOPHILIC CELLULITIS
     Dosage: UNK , DAILY
     Route: 065
  4. MEPOLIZUMAB [Concomitant]
     Active Substance: MEPOLIZUMAB
     Indication: EOSINOPHILIC CELLULITIS
     Dosage: 100 MG , UNK (1.6 MONTHS)
     Route: 065
  5. PREDNISONE. [Suspect]
     Active Substance: PREDNISONE
     Indication: EOSINOPHILIC CELLULITIS
     Dosage: UNK , DAILY
     Route: 065
  6. GRISEOFULVIN. [Suspect]
     Active Substance: GRISEOFULVIN
     Indication: EOSINOPHILIC CELLULITIS
     Dosage: UNK , DAILY
     Route: 065

REACTIONS (1)
  - Drug dependence [Unknown]
